FAERS Safety Report 15785404 (Version 1)
Quarter: 2019Q1

REPORT INFORMATION
  Report Type: Spontaneous
  Country: CN (occurrence: CN)
  Receive Date: 20190103
  Receipt Date: 20190103
  Transmission Date: 20190417
  Serious: Yes (Other)
  Sender: FDA-Public Use
  Company Number: CN-ROCHE-2238924

PATIENT
  Age: 43 Year
  Sex: Male

DRUGS (11)
  1. FLUOROURACIL. [Concomitant]
     Active Substance: FLUOROURACIL
     Dosage: FOR 4 CYCLE
     Route: 065
     Dates: start: 20141023, end: 20141205
  2. IRINOTECAN [Concomitant]
     Active Substance: IRINOTECAN
     Dosage: FOR 4 CYCLE
     Route: 065
     Dates: start: 20141023, end: 20141205
  3. FLUOROURACIL. [Concomitant]
     Active Substance: FLUOROURACIL
     Dosage: FOR 4 CYCLE
     Route: 065
  4. FLUOROURACIL. [Concomitant]
     Active Substance: FLUOROURACIL
     Route: 065
  5. FOLINIC ACID [Concomitant]
     Active Substance: LEUCOVORIN
     Indication: COLON CANCER METASTATIC
     Dosage: FOR 4 CYCLE
     Route: 065
     Dates: start: 20140829, end: 20141021
  6. FOLINIC ACID [Concomitant]
     Active Substance: LEUCOVORIN
     Dosage: FOR 4 CYCLE
     Route: 065
  7. AVASTIN [Suspect]
     Active Substance: BEVACIZUMAB
     Dosage: FOR 4 CYCLE
     Route: 042
     Dates: start: 20141023, end: 20141205
  8. IRINOTECAN [Concomitant]
     Active Substance: IRINOTECAN
     Indication: COLON CANCER METASTATIC
     Dosage: FOR 4 CYCLE
     Route: 065
     Dates: start: 20140829, end: 20141021
  9. FLUOROURACIL. [Concomitant]
     Active Substance: FLUOROURACIL
     Indication: COLON CANCER METASTATIC
     Dosage: FOR 4 CYCLE
     Route: 065
     Dates: start: 20140829, end: 20141021
  10. FOLINIC ACID [Concomitant]
     Active Substance: LEUCOVORIN
     Dosage: FOR 4 CYCLE
     Route: 065
     Dates: start: 20141023, end: 20141205
  11. AVASTIN [Suspect]
     Active Substance: BEVACIZUMAB
     Indication: COLON CANCER METASTATIC
     Dosage: FOR 4 CYCLE
     Route: 042
     Dates: start: 20140829, end: 20141021

REACTIONS (1)
  - Bone marrow failure [Unknown]
